FAERS Safety Report 22077118 (Version 1)
Quarter: 2023Q1

REPORT INFORMATION
  Report Type: Spontaneous
  Country: JP (occurrence: None)
  Receive Date: 20230309
  Receipt Date: 20230309
  Transmission Date: 20230418
  Serious: Yes (Other)
  Sender: FDA-Public Use
  Company Number: JP-Merck Healthcare KGaA-9387738

PATIENT
  Age: 85 Year
  Sex: Female
  Weight: 33 kg

DRUGS (3)
  1. METGLUCO [Suspect]
     Active Substance: METFORMIN HYDROCHLORIDE
     Indication: Type 2 diabetes mellitus
     Route: 048
  2. RYBELSUS [Suspect]
     Active Substance: SEMAGLUTIDE
     Indication: Product used for unknown indication
     Route: 048
  3. LUSEOGLIFLOZIN [Suspect]
     Active Substance: LUSEOGLIFLOZIN
     Indication: Product used for unknown indication
     Route: 048

REACTIONS (4)
  - Femoral neck fracture [Unknown]
  - Glycosylated haemoglobin increased [Unknown]
  - Treatment noncompliance [Unknown]
  - Off label use [Unknown]
